FAERS Safety Report 6576361-4 (Version None)
Quarter: 2010Q1

REPORT INFORMATION
  Report Type: 
  Country: None (occurrence: None)
  Receive Date: 20100210
  Receipt Date: 20100202
  Transmission Date: 20100710
  Serious: Yes (Hospitalization)
  Sender: FDA-Public Use
  Company Number: DE-JNJFOC-20090102072

PATIENT
  Age: 85 Year
  Sex: Female

DRUGS (9)
  1. IMODIUM [Suspect]
     Indication: PROPHYLAXIS
     Route: 048
     Dates: start: 20080904, end: 20080904
  2. MOXONIDINE [Suspect]
     Indication: HYPERTENSION
     Route: 048
  3. AMARYL [Concomitant]
     Indication: DIABETES MELLITUS
     Route: 048
     Dates: start: 20070301
  4. AMLODIPINE [Concomitant]
     Indication: HYPERTENSION
     Dates: start: 20070301
  5. BISOPROLOL [Concomitant]
     Indication: HYPERTENSION
     Route: 048
     Dates: start: 20070301
  6. LISINOPRIL [Concomitant]
     Indication: HYPERTENSION
     Route: 048
     Dates: start: 20070301
  7. METFORMIN HCL [Concomitant]
     Indication: DIABETES MELLITUS
     Route: 048
     Dates: end: 20080908
  8. XALACOM [Concomitant]
     Indication: GLAUCOMA
     Route: 003
  9. XIPAMIDE [Concomitant]
     Indication: HYPERTENSION
     Route: 048

REACTIONS (6)
  - ABDOMINAL PAIN UPPER [None]
  - BLOOD CALCIUM INCREASED [None]
  - BLOOD FIBRINOGEN INCREASED [None]
  - BLOOD UREA INCREASED [None]
  - FAECALOMA [None]
  - GASTROINTESTINAL HYPOMOTILITY [None]
